FAERS Safety Report 6774267-9 (Version None)
Quarter: 2010Q2

REPORT INFORMATION
  Report Type: 
  Country: None (occurrence: None)
  Receive Date: 20100617
  Receipt Date: 20100617
  Transmission Date: 20101027
  Serious: Yes (Hospitalization)
  Sender: FDA-Public Use
  Company Number: US-ABBOTT-10P-163-0649468-00

PATIENT
  Sex: Female
  Weight: 61.29 kg

DRUGS (6)
  1. HUMIRA [Suspect]
     Indication: RHEUMATOID ARTHRITIS
     Dates: start: 20060101, end: 20100101
  2. HUMIRA [Suspect]
     Dates: start: 20100101
  3. ORTHO TRI-CYCLEN [Concomitant]
     Indication: CONTRACEPTION
  4. LEXAPRO [Concomitant]
     Indication: ANXIETY
  5. MINOCYCLINE HCL [Concomitant]
     Indication: ACNE
  6. METHOTREXATE [Concomitant]
     Indication: RHEUMATOID ARTHRITIS
     Dates: start: 20060101

REACTIONS (4)
  - ARTHRALGIA [None]
  - BACK DISORDER [None]
  - INTERVERTEBRAL DISC PROTRUSION [None]
  - QUALITY OF LIFE DECREASED [None]
